FAERS Safety Report 8885000 (Version 4)
Quarter: 2014Q3

REPORT INFORMATION
  Report Type: Report from Study
  Country: US (occurrence: US)
  Receive Date: 20121105
  Receipt Date: 20140805
  Transmission Date: 20150326
  Serious: Yes (Hospitalization, Other)
  Sender: FDA-Public Use
  Company Number: US-BIOGENIDEC-2012BI048582

PATIENT
  Age: 21 Year
  Sex: Male

DRUGS (2)
  1. TYSABRI [Suspect]
     Active Substance: NATALIZUMAB
     Indication: MULTIPLE SCLEROSIS
     Route: 042
     Dates: start: 20110422, end: 20121119
  2. TYSABRI [Suspect]
     Active Substance: NATALIZUMAB
     Indication: MULTIPLE SCLEROSIS
     Route: 042
     Dates: start: 20131003

REACTIONS (3)
  - Dermatofibrosarcoma protuberans [Not Recovered/Not Resolved]
  - Metastatic neoplasm [Not Recovered/Not Resolved]
  - Tremor [Not Recovered/Not Resolved]

NARRATIVE: CASE EVENT DATE: 20110422
